FAERS Safety Report 7621340-9 (Version None)
Quarter: 2011Q3

REPORT INFORMATION
  Report Type: 
  Country: None (occurrence: None)
  Receive Date: 20110719
  Receipt Date: 20110711
  Transmission Date: 20111222
  Serious: Yes (Death, Other)
  Sender: FDA-Public Use
  Company Number: US-BAYER-200925586NA

PATIENT
  Age: 74 Year
  Sex: Female
  Weight: 56.689 kg

DRUGS (15)
  1. NITROGLYCERIN [Concomitant]
     Dosage: UNK
     Route: 060
     Dates: end: 20070401
  2. ZOCOR [Concomitant]
     Dosage: 20 MG, QD
     Route: 048
     Dates: end: 20070401
  3. ATENOLOL [Concomitant]
     Dosage: 100 MG, UNK
     Route: 042
     Dates: start: 20070404
  4. COZAAR [Concomitant]
     Dosage: 25 MG, QD
     Route: 048
  5. REGLAN [Concomitant]
     Dosage: 20 MG, 1/2 TAB AS NEEDED
     Route: 048
  6. ATENOLOL [Concomitant]
     Dosage: 25 MG, QD
     Route: 048
     Dates: end: 20070401
  7. ALDACTONE [Concomitant]
     Dosage: 25 MG, QD
     Route: 048
  8. PROTONIX [Concomitant]
     Dosage: 40 MG, BID
     Route: 048
     Dates: start: 20040310
  9. ISOVUE-370 [Concomitant]
     Dosage: UNK
     Dates: start: 20070101
  10. TRASYLOL [Suspect]
     Indication: CORONARY ARTERY BYPASS
     Dosage: 200 ML LOADING DOSE
     Route: 042
     Dates: start: 20070404, end: 20070404
  11. LOVENOX [Concomitant]
     Dosage: UNK
     Dates: end: 20070401
  12. PLAVIX [Concomitant]
     Dosage: 75 MG, QD
     Route: 048
     Dates: end: 20070401
  13. ZETIA [Concomitant]
     Dosage: UNK
     Route: 048
     Dates: end: 20070401
  14. LEVAQUIN [Concomitant]
     Dosage: 500 MG, UNK
     Route: 042
     Dates: start: 20070404
  15. PRILOSEC [Concomitant]
     Dosage: 20 MG, QD
     Route: 048
     Dates: end: 20070401

REACTIONS (6)
  - RENAL FAILURE [None]
  - INJURY [None]
  - UNEVALUABLE EVENT [None]
  - EMOTIONAL DISTRESS [None]
  - RENAL FAILURE ACUTE [None]
  - PAIN [None]
